FAERS Safety Report 6341296-9 (Version None)
Quarter: 2009Q3

REPORT INFORMATION
  Report Type: 
  Country: None (occurrence: None)
  Receive Date: 20090904
  Receipt Date: 20090831
  Transmission Date: 20100115
  Serious: Yes (Hospitalization)
  Sender: FDA-Public Use
  Company Number: JP-JNJFOC-20090705615

PATIENT
  Sex: Female
  Weight: 54 kg

DRUGS (16)
  1. TRAMADOL HCL [Suspect]
     Indication: PAIN
     Dosage: 4-8 DOSES
     Route: 048
  2. LETRAC [Concomitant]
     Indication: DIABETIC NEUROPATHY
     Route: 048
  3. MECOBALAMIN [Concomitant]
     Indication: DIABETIC NEUROPATHY
     Route: 048
  4. MAGMITT [Concomitant]
     Indication: CONSTIPATION
     Route: 048
  5. HUMALOG [Concomitant]
     Indication: DIABETES MELLITUS
     Route: 058
  6. PARIET [Concomitant]
     Indication: GASTRITIS PROPHYLAXIS
     Route: 048
  7. AMARYL [Concomitant]
     Indication: DIABETES MELLITUS
     Route: 048
  8. PURSENNID [Concomitant]
     Indication: CONSTIPATION
     Route: 048
  9. NELBIS [Concomitant]
     Indication: DIABETES MELLITUS
     Route: 048
  10. MOHRUS [Concomitant]
     Dosage: 2-3 DOSE FREQUENCY
     Route: 062
  11. MOHRUS [Concomitant]
     Indication: CONTUSION
     Dosage: 2-3 DOSE FREQUENCY
     Route: 062
  12. GASMOTIN [Concomitant]
     Indication: NAUSEA
     Route: 048
  13. PL GRANULE [Concomitant]
     Route: 048
  14. PL GRANULE [Concomitant]
     Indication: RHINITIS ALLERGIC
     Route: 048
  15. MILTAX [Concomitant]
     Indication: CONTUSION
     Dosage: 2-3 DOSES PER DAY
     Route: 062
  16. KAKKON-TO [Concomitant]
     Indication: NASOPHARYNGITIS
     Route: 048

REACTIONS (1)
  - LUMBAR SPINAL STENOSIS [None]
